FAERS Safety Report 5708285-6 (Version None)
Quarter: 2008Q2

REPORT INFORMATION
  Report Type: 
  Country: None (occurrence: None)
  Receive Date: 20080417
  Receipt Date: 20080411
  Transmission Date: 20081010
  Serious: Yes (Life-Threatening, Hospitalization)
  Sender: FDA-Public Use
  Company Number: US-MERCK-0804USA00940

PATIENT
  Age: 52 Year
  Sex: Female

DRUGS (3)
  1. ZETIA [Suspect]
     Indication: BLOOD CHOLESTEROL INCREASED
     Route: 048
     Dates: start: 20070911, end: 20070918
  2. [THERAPY UNSPECIFIED] [Concomitant]
     Route: 065
  3. PRAVASTATIN SODIUM [Concomitant]
     Route: 065
     Dates: start: 20070712, end: 20070911

REACTIONS (9)
  - ASTHENIA [None]
  - CORONARY ARTERY DISEASE [None]
  - DIARRHOEA [None]
  - HYPERTENSION [None]
  - HYPOVOLAEMIC SHOCK [None]
  - IRON DEFICIENCY [None]
  - NAUSEA [None]
  - OEDEMA [None]
  - RENAL FAILURE ACUTE [None]
